FAERS Safety Report 10423167 (Version 1)
Quarter: 2014Q3

REPORT INFORMATION
  Report Type: Spontaneous
  Country: US (occurrence: None)
  Receive Date: 20140722
  Receipt Date: 20140722
  Transmission Date: 20150326
  Serious: No
  Sender: FDA-Public Use
  Company Number: AEGR000429

PATIENT
  Age: 47 Year
  Sex: Male
  Weight: 80.7 kg

DRUGS (3)
  1. FISH OIL [Concomitant]
     Active Substance: FISH OIL
  2. ZETIA [Concomitant]
     Active Substance: EZETIMIBE
  3. JUXTAPID [Suspect]
     Active Substance: LOMITAPIDE MESYLATE
     Indication: HYPERCHOLESTEROLAEMIA
     Route: 048
     Dates: start: 201404

REACTIONS (5)
  - Irritable bowel syndrome [None]
  - Off label use [None]
  - Abdominal pain upper [None]
  - Constipation [None]
  - Flatulence [None]

NARRATIVE: CASE EVENT DATE: 20140403
